FAERS Safety Report 10600469 (Version 17)
Quarter: 2016Q2

REPORT INFORMATION
  Report Type: Spontaneous
  Country: CN (occurrence: CN)
  Receive Date: 20141124
  Receipt Date: 20160630
  Transmission Date: 20160815
  Serious: Yes (Hospitalization, Other)
  Sender: FDA-Public Use
  Company Number: CN-009507513-1411CHN007807

PATIENT
  Age: 60 Year
  Sex: Male
  Weight: 86 kg

DRUGS (25)
  1. ONDANSETRON HYDROCHLORIDE. [Concomitant]
     Active Substance: ONDANSETRON HYDROCHLORIDE
     Dosage: STRENGTH-4MG/2ML, 8MG DAILY
     Route: 042
     Dates: start: 20141114, end: 20141115
  2. PANTOPRAZOLE SODIUM. [Concomitant]
     Active Substance: PANTOPRAZOLE SODIUM
     Indication: PROPHYLAXIS AGAINST GASTROINTESTINAL ULCER
     Dosage: UNK UNK, QD
     Route: 042
     Dates: start: 20141113, end: 20141115
  3. IRINOTECAN HYDROCHLORIDE. [Concomitant]
     Active Substance: IRINOTECAN HYDROCHLORIDE
     Indication: CHEMOTHERAPY
     Dosage: 100MG/D1 TREATMENT CYCLE UNK/UNK
     Route: 041
     Dates: start: 20141108, end: 20141115
  4. CALCIUM CHLORIDE (+) DEXTROSE (+) MAGNESIUM CHLORIDE (+) POTASSIUM CHL [Concomitant]
     Indication: ELECTROLYTE SUBSTITUTION THERAPY
     Dosage: TOTAL DAILY DOSE: 500ML/CC
     Route: 041
     Dates: start: 20141108, end: 20141110
  5. CISPLATIN. [Concomitant]
     Active Substance: CISPLATIN
     Indication: CHEMOTHERAPY
     Dosage: 40 MG, (D1-D3), IVGTT
     Route: 041
     Dates: start: 20141108, end: 20141110
  6. TROPISETRON HYDROCHLORIDE [Concomitant]
     Active Substance: TROPISETRON HYDROCHLORIDE
     Indication: PROPHYLAXIS OF NAUSEA AND VOMITING
     Dosage: STRENGTH-5MG/1ML, 5MG DAILY
     Route: 042
     Dates: start: 20141108, end: 20141110
  7. DEXAMETHASONE. [Concomitant]
     Active Substance: DEXAMETHASONE
     Dosage: STRENGTH-5MG/1ML, 5MG DAILY
     Route: 042
     Dates: start: 20141114, end: 20141115
  8. EMEND [Suspect]
     Active Substance: APREPITANT
     Indication: PROPHYLAXIS OF NAUSEA AND VOMITING
     Dosage: 125 MG, ONCE (DAY 1)
     Route: 048
     Dates: start: 20141108, end: 20141108
  9. SODIUM BICARBONATE. [Concomitant]
     Active Substance: SODIUM BICARBONATE
     Dosage: STRENGTH-5%1ML, 40ML/CC DAILY
     Route: 041
     Dates: start: 20141114, end: 20141115
  10. CALCIUM CHLORIDE (+) DEXTROSE (+) MAGNESIUM CHLORIDE (+) POTASSIUM CHL [Concomitant]
     Dosage: TOTAL DAILY DOSE: 500ML/CC
     Route: 041
     Dates: start: 20141114, end: 20141115
  11. ONDANSETRON HYDROCHLORIDE. [Concomitant]
     Active Substance: ONDANSETRON HYDROCHLORIDE
     Indication: PROPHYLAXIS OF NAUSEA AND VOMITING
     Dosage: STRENGTH-4MG/2ML, 8MG DAILY
     Route: 042
     Dates: start: 20141108, end: 20141110
  12. MANNITOL. [Concomitant]
     Active Substance: MANNITOL
     Indication: DIURETIC THERAPY
     Dosage: STRENGTH-50G/250ML, 50G DAILY
     Route: 041
     Dates: start: 20141108, end: 20141110
  13. CAL D (CHOLECALCIFEROL) [Concomitant]
     Indication: OSTEOPOROSIS
     Dosage: 600 MG, QD
     Route: 048
     Dates: start: 20141113, end: 20141120
  14. PANTOPRAZOLE [Concomitant]
     Active Substance: PANTOPRAZOLE SODIUM
     Indication: PROPHYLAXIS
     Dosage: 42.3 MG, QD, IVGTT
     Route: 041
     Dates: start: 20141102
  15. THYMOPENTIN [Concomitant]
     Active Substance: THYMOPENTIN
     Indication: IMMUNE SYSTEM DISORDER
     Dosage: DAILY DOSE: 50MG QD
     Route: 030
     Dates: start: 20141108, end: 20141120
  16. GLUTATHIONE [Concomitant]
     Active Substance: GLUTATHIONE
     Dosage: 1.8 G, QD
     Route: 041
     Dates: start: 20141114, end: 20141115
  17. EMEND [Suspect]
     Active Substance: APREPITANT
     Dosage: 80 MG,QD (DAY 2 AND 3)
     Route: 048
     Dates: start: 20141109, end: 20141110
  18. LEVOCARNITINE. [Concomitant]
     Active Substance: LEVOCARNITINE
     Indication: CARDIOVASCULAR EVENT PROPHYLAXIS
     Dosage: STRENGTH 1G/5ML, 3G DAILY
     Route: 041
     Dates: start: 20141108, end: 20141110
  19. TROPISETRON HYDROCHLORIDE [Concomitant]
     Active Substance: TROPISETRON HYDROCHLORIDE
     Dosage: STRENGTH-5MG/1ML, 5MG DAILY
     Route: 041
     Dates: start: 20141114, end: 20141115
  20. DEXAMETHASONE. [Concomitant]
     Active Substance: DEXAMETHASONE
     Indication: PROPHYLAXIS OF NAUSEA AND VOMITING
     Dosage: STRENGTH-5MG/1ML, 5MG DAILY
     Route: 042
     Dates: start: 20141108, end: 20141110
  21. METHOXYPHENAMINE HYDROCHLORIDE [Concomitant]
     Active Substance: METHOXYPHENAMINE HYDROCHLORIDE
     Indication: COUGH
     Dosage: STRENGTH 12.5MG. TOTAL DAILY DOSE: 75 MG. FREQUENCY TID
     Route: 048
     Dates: start: 20141113, end: 20141120
  22. LEVOCARNITINE. [Concomitant]
     Active Substance: LEVOCARNITINE
     Dosage: 3 G, QD
     Route: 041
     Dates: start: 20141114, end: 20141115
  23. AI DI ZHU SHE YE [Concomitant]
     Indication: NEOPLASM
     Dosage: TOTAL DAILY DOSE: 100ML/CC
     Route: 041
     Dates: start: 20141108, end: 20141110
  24. SODIUM BICARBONATE. [Concomitant]
     Active Substance: SODIUM BICARBONATE
     Indication: PH URINE DECREASED
     Dosage: STRENGTH-5%1ML, 40ML/CC DAILY
     Route: 041
     Dates: start: 20141108, end: 20141110
  25. GLUTATHIONE [Concomitant]
     Active Substance: GLUTATHIONE
     Indication: PROPHYLAXIS
     Dosage: TOTAL DAILY DOSE: 1.8 G. QD
     Route: 041
     Dates: start: 20141108, end: 20141110

REACTIONS (7)
  - Platelet count decreased [Not Recovered/Not Resolved]
  - Diarrhoea [Recovered/Resolved]
  - Lumbar vertebral fracture [Recovered/Resolved]
  - White blood cell count decreased [Recovering/Resolving]
  - Wheezing [Recovering/Resolving]
  - Neutrophil count decreased [Recovering/Resolving]
  - Haemoglobin decreased [Not Recovered/Not Resolved]

NARRATIVE: CASE EVENT DATE: 20141115
